FAERS Safety Report 6661420-8 (Version None)
Quarter: 2010Q1

REPORT INFORMATION
  Report Type: 
  Country: None (occurrence: None)
  Receive Date: 20100331
  Receipt Date: 20100318
  Transmission Date: 20100710
  Serious: Yes (Other)
  Sender: FDA-Public Use
  Company Number: US-WATSON-2010-03213

PATIENT

DRUGS (1)
  1. LEVONORGESTREL [Suspect]
     Indication: ORAL CONTRACEPTION
     Dosage: 2 TABLETS 12 HOURS APART
     Route: 048
     Dates: start: 20100201

REACTIONS (4)
  - ABORTION SPONTANEOUS [None]
  - BACK PAIN [None]
  - DRUG EXPOSURE DURING PREGNANCY [None]
  - MENORRHAGIA [None]
